FAERS Safety Report 8378143-X (Version None)
Quarter: 2012Q2

REPORT INFORMATION
  Report Type: 
  Country: None (occurrence: None)
  Receive Date: 20120522
  Receipt Date: 20120515
  Transmission Date: 20120825
  Serious: Yes (Other)
  Sender: FDA-Public Use
  Company Number: JP-ROCHE-1024185

PATIENT
  Sex: Male

DRUGS (4)
  1. RANIBIZUMAB [Suspect]
     Indication: AGE-RELATED MACULAR DEGENERATION
     Route: 050
     Dates: start: 20090630
  2. LEVOFLOXACIN [Concomitant]
  3. RANIBIZUMAB [Suspect]
     Dates: start: 20090807
  4. CEFMENOXIME HYDROCHLORIDE [Concomitant]

REACTIONS (1)
  - VITREOUS HAEMORRHAGE [None]
